FAERS Safety Report 6063780-8 (Version None)
Quarter: 2009Q1

REPORT INFORMATION
  Report Type: 
  Country: None (occurrence: None)
  Receive Date: 20090204
  Receipt Date: 20090202
  Transmission Date: 20090719
  Serious: Yes (Death)
  Sender: FDA-Public Use
  Company Number: US-ASTRAZENECA-2008UW20715

PATIENT
  Age: 59 Year
  Sex: Female
  Weight: 121.6 kg

DRUGS (7)
  1. SEROQUEL [Suspect]
     Indication: BIPOLAR DISORDER
     Route: 048
     Dates: start: 19960810, end: 20010101
  2. SEROQUEL [Suspect]
     Indication: MOOD ALTERED
     Route: 048
     Dates: start: 19960810, end: 20010101
  3. SEROQUEL [Suspect]
     Indication: SLEEP DISORDER
     Route: 048
     Dates: start: 19960810, end: 20010101
  4. ALPRAZOLAM [Concomitant]
     Indication: ANXIETY
     Dosage: 1.0 -2.0 MG DAILY
     Route: 048
     Dates: start: 19900101
  5. CLONAZEPAM [Concomitant]
     Indication: ANXIETY
     Route: 048
     Dates: start: 19950415
  6. CLONAZEPAM [Concomitant]
     Indication: AFFECTIVE DISORDER
     Route: 048
     Dates: start: 19950415
  7. OMEPRAZOLE [Concomitant]
     Indication: GASTROOESOPHAGEAL REFLUX DISEASE
     Dosage: 20-40 MG
     Route: 048
     Dates: start: 19900101

REACTIONS (5)
  - CARDIAC FAILURE CONGESTIVE [None]
  - OEDEMA [None]
  - SEDATION [None]
  - SOMNOLENCE [None]
  - WEIGHT INCREASED [None]
